FAERS Safety Report 5485359-9 (Version None)
Quarter: 2007Q4

REPORT INFORMATION
  Report Type: 
  Country: None (occurrence: None)
  Receive Date: 20071015
  Receipt Date: 20071008
  Transmission Date: 20080405
  Serious: Yes (Hospitalization, Other)
  Sender: FDA-Public Use
  Company Number: US-BRISTOL-MYERS SQUIBB COMPANY-13881644

PATIENT
  Age: 67 Year
  Sex: Female
  Weight: 78 kg

DRUGS (1)
  1. DASATINIB [Suspect]
     Indication: GLIOBLASTOMA MULTIFORME
     Dosage: INTIAL DOSE 100MG,BID,ON 06 JUN 07 DOSE REDUCED TO 75MGBID. DOSE OF 3400MG ON 06JULY 2007
     Route: 048
     Dates: start: 20070606, end: 20070706

REACTIONS (4)
  - ANGINA PECTORIS [None]
  - HYPERKALAEMIA [None]
  - MYOCARDIAL INFARCTION [None]
  - TROPONIN I [None]
